FAERS Safety Report 19004199 (Version 2)
Quarter: 2021Q2

REPORT INFORMATION
  Report Type: Spontaneous
  Country: JP (occurrence: JP)
  Receive Date: 20210312
  Receipt Date: 20210419
  Transmission Date: 20210717
  Serious: Yes (Other)
  Sender: FDA-Public Use
  Company Number: JP-FERRINGPH-2021FE01512

PATIENT
  Age: 39 Year
  Sex: Female
  Weight: 71.85 kg

DRUGS (2)
  1. PROPESS [Suspect]
     Active Substance: DINOPROSTONE
     Indication: MACROSOMIA
  2. PROPESS [Suspect]
     Active Substance: DINOPROSTONE
     Indication: INDUCTION OF CERVIX RIPENING
     Dosage: 1 DF, ONCE/SINGLE
     Route: 067
     Dates: start: 20210202, end: 20210202

REACTIONS (1)
  - Premature separation of placenta [Not Recovered/Not Resolved]

NARRATIVE: CASE EVENT DATE: 202102
